FAERS Safety Report 4507423-0 (Version None)
Quarter: 2004Q4

REPORT INFORMATION
  Report Type: 
  Country: None (occurrence: None)
  Receive Date: 20041118
  Receipt Date: 20041105
  Transmission Date: 20050328
  Serious: Yes (Hospitalization)
  Sender: FDA-Public Use
  Company Number: 210110

PATIENT
  Age: 39 Year
  Sex: Female

DRUGS (9)
  1. RITUXAN [Suspect]
     Indication: NON-HODGKIN'S LYMPHOMA
     Dosage: SEE IMAGE
     Dates: start: 20030129, end: 20030319
  2. RITUXAN [Suspect]
     Indication: NON-HODGKIN'S LYMPHOMA
     Dosage: SEE IMAGE
     Dates: start: 20030922, end: 20031013
  3. RITUXAN [Suspect]
     Indication: NON-HODGKIN'S LYMPHOMA
     Dosage: SEE IMAGE
     Dates: start: 20040308, end: 20040329
  4. PHENERGAN SUPPOSITORIES (PROMETHAZINE HYDROCHLORIDE) [Concomitant]
  5. TYLENOL [Concomitant]
  6. EFFEXOR XR [Concomitant]
  7. CIMETIDINE [Concomitant]
  8. PREDNISONE [Concomitant]
  9. BENADRYL [Concomitant]

REACTIONS (19)
  - ANTINEUTROPHIL CYTOPLASMIC ANTIBODY POSITIVE [None]
  - ANTINUCLEAR ANTIBODY POSITIVE [None]
  - AUTOIMMUNE DISORDER [None]
  - CSF PROTEIN INCREASED [None]
  - CULTURE URINE POSITIVE [None]
  - DEHYDRATION [None]
  - DEPRESSION [None]
  - GASTROINTESTINAL DISORDER [None]
  - HEADACHE [None]
  - HYPERSENSITIVITY [None]
  - INFLAMMATION [None]
  - LYMPHADENOPATHY [None]
  - NAUSEA [None]
  - PARAESTHESIA [None]
  - PYREXIA [None]
  - SKIN BURNING SENSATION [None]
  - SKIN DISORDER [None]
  - THYROIDITIS [None]
  - VOMITING [None]
